FAERS Safety Report 4786346-6 (Version None)
Quarter: 2005Q3

REPORT INFORMATION
  Report Type: 
  Country: None (occurrence: None)
  Receive Date: 20050927
  Receipt Date: 20050818
  Transmission Date: 20060218
  Serious: No
  Sender: FDA-Public Use
  Company Number: USA0508105850

PATIENT
  Age: 59 Year
  Sex: Female

DRUGS (3)
  1. STRATTERA [Suspect]
     Indication: ATTENTION DEFICIT/HYPERACTIVITY DISORDER
     Dosage: 80 MG
     Dates: start: 20040101
  2. HORMONE REPLACEMENT THERAPY [Concomitant]
  3. LIPITOR [Concomitant]

REACTIONS (1)
  - INFLAMMATION [None]
